FAERS Safety Report 4306575-5 (Version None)
Quarter: 2004Q1

REPORT INFORMATION
  Report Type: 
  Country: None (occurrence: None)
  Receive Date: 20040225
  Receipt Date: 20030908
  Transmission Date: 20041129
  Serious: No
  Sender: FDA-Public Use
  Company Number: US-BRISTOL-MYERS SQUIBB COMPANY-12393542

PATIENT
  Sex: Female

DRUGS (4)
  1. EXCEDRIN (MIGRAINE) [Suspect]
     Indication: HEADACHE
     Route: 048
  2. EXCEDRIN (MIGRAINE) [Suspect]
     Indication: MIGRAINE
     Route: 048
  3. EXCEDRIN (MIGRAINE) [Suspect]
     Indication: HEADACHE
     Route: 048
  4. EXCEDRIN (MIGRAINE) [Suspect]
     Indication: MIGRAINE
     Route: 048

REACTIONS (1)
  - DRUG EFFECT DECREASED [None]
